FAERS Safety Report 7861742-9 (Version None)
Quarter: 2011Q4

REPORT INFORMATION
  Report Type: 
  Country: None (occurrence: None)
  Receive Date: 20111027
  Receipt Date: 20111012
  Transmission Date: 20120403
  Serious: Yes (Other)
  Sender: FDA-Public Use
  Company Number: US-ROCHE-782530

PATIENT
  Sex: Female
  Weight: 73.548 kg

DRUGS (3)
  1. ORTHO TRI-CYCLEN [Concomitant]
  2. ACCUTANE [Suspect]
     Indication: ACNE
     Route: 065
     Dates: start: 20001201, end: 20020101
  3. IBUPROFEN (ADVIL) [Concomitant]

REACTIONS (8)
  - ABDOMINAL PAIN [None]
  - DEPRESSION [None]
  - RECTAL HAEMORRHAGE [None]
  - LIVER DISORDER [None]
  - HYPERGLYCAEMIA [None]
  - INFLAMMATORY BOWEL DISEASE [None]
  - HAEMORRHOIDS [None]
  - COLITIS ULCERATIVE [None]
